FAERS Safety Report 7406845-8 (Version None)
Quarter: 2011Q2

REPORT INFORMATION
  Report Type: 
  Country: None (occurrence: None)
  Receive Date: 20110406
  Receipt Date: 20110406
  Transmission Date: 20111010
  Serious: Yes (Hospitalization)
  Sender: FDA-Public Use
  Company Number: None

PATIENT
  Sex: Female
  Weight: 71.3 kg

DRUGS (2)
  1. TAXOL [Suspect]
     Dosage: 438 MG
     Dates: end: 20110329
  2. CARBOPLATIN [Suspect]
     Dosage: 678 MG
     Dates: end: 20110315

REACTIONS (7)
  - PYREXIA [None]
  - ANAEMIA [None]
  - HYPOMAGNESAEMIA [None]
  - HYPOKALAEMIA [None]
  - HYPOTENSION [None]
  - FATIGUE [None]
  - CHILLS [None]
